FAERS Safety Report 6885730-4 (Version None)
Quarter: 2010Q3

REPORT INFORMATION
  Report Type: 
  Country: None (occurrence: None)
  Receive Date: 20100729
  Receipt Date: 20080220
  Transmission Date: 20110219
  Serious: No
  Sender: FDA-Public Use
  Company Number: US-PFIZER INC-2008012975

PATIENT
  Sex: Male
  Weight: 79.09 kg

DRUGS (1)
  1. CELEBREX [Suspect]
     Indication: TENDONITIS
     Dates: start: 20080108, end: 20080205

REACTIONS (8)
  - APATHY [None]
  - CONSTIPATION [None]
  - DRUG DOSE OMISSION [None]
  - DRUG INEFFECTIVE [None]
  - FATIGUE [None]
  - FEELING ABNORMAL [None]
  - NAUSEA [None]
  - VOMITING [None]
